FAERS Safety Report 7915338-0 (Version None)
Quarter: 2011Q4

REPORT INFORMATION
  Report Type: 
  Country: None (occurrence: None)
  Receive Date: 20111115
  Receipt Date: 20111107
  Transmission Date: 20120403
  Serious: Yes (Hospitalization, Disabling)
  Sender: FDA-Public Use
  Company Number: PHHO2011CZ018592

PATIENT
  Sex: Male
  Weight: 17 kg

DRUGS (4)
  1. VINCRISTINE [Concomitant]
     Indication: LEUKAEMIA
     Dosage: 1.5 M2 WEEKLY
     Dates: start: 20110904, end: 20110923
  2. DOXORUBICIN HCL [Concomitant]
     Indication: LEUKAEMIA
     Dosage: 30 G/M3 WEEKLY
     Dates: start: 20110904, end: 20110923
  3. DEXAMETHASONE [Concomitant]
     Indication: LEUKAEMIA
     Dosage: 10 G/M2 DAILY
     Dates: start: 20110829, end: 20110930
  4. GLEEVEC [Suspect]
     Indication: ACUTE LYMPHOCYTIC LEUKAEMIA
     Dosage: 200 MG, UNK
     Route: 048
     Dates: start: 20100903

REACTIONS (2)
  - OESOPHAGEAL STENOSIS [None]
  - DISEASE PROGRESSION [None]
